FAERS Safety Report 8742147 (Version 2)
Quarter: 2012Q4

REPORT INFORMATION
  Report Type: 
  Country: MX (occurrence: MX)
  Receive Date: 20120824
  Receipt Date: 20120921
  Transmission Date: 20130627
  Serious: Yes (Other)
  Sender: FDA-Public Use
  Company Number: PHHY2012MX072038

PATIENT
  Sex: Male

DRUGS (5)
  1. CO-DIOVAN [Suspect]
     Indication: HYPERTENSION
     Dosage: 1.5 tablet (160/12.5 mg), daily
     Dates: start: 201101
  2. CO-DIOVAN [Suspect]
     Dosage: 0.5 DF (160/12.5 mg), daily
     Dates: start: 201101
  3. ASPIRIN PROTECT [Concomitant]
     Indication: HYPERTENSION
     Dates: start: 200201
  4. VITAMINS [Concomitant]
     Indication: DIABETES MELLITUS
  5. CLONAZEPAM [Concomitant]
     Indication: SLEEP DISORDER

REACTIONS (5)
  - Cardiac disorder [Not Recovered/Not Resolved]
  - Infarction [Not Recovered/Not Resolved]
  - Wrong technique in drug usage process [Unknown]
  - Blood pressure fluctuation [Not Recovered/Not Resolved]
  - Oedema peripheral [Unknown]
